FAERS Safety Report 10194833 (Version 1)
Quarter: 2014Q2

REPORT INFORMATION
  Report Type: Other
  Country: CN (occurrence: CN)
  Receive Date: 20140526
  Receipt Date: 20140526
  Transmission Date: 20141212
  Serious: Yes (Death, Other)
  Sender: FDA-Public Use
  Company Number: CN-ACTELION-A-CH2014-99441

PATIENT
  Age: 15 Year
  Sex: Male
  Weight: 36 kg

DRUGS (4)
  1. TRACLEER [Suspect]
     Indication: PULMONARY ARTERIAL HYPERTENSION
     Route: 048
  2. NITRIC OXIDE [Concomitant]
  3. VENTAVIS [Concomitant]
  4. VENTAVIS BAYER SCHERING [Concomitant]
     Indication: PULMONARY ARTERIAL HYPERTENSION

REACTIONS (1)
  - Pulmonary hypertensive crisis [Fatal]
